FAERS Safety Report 6814908-0 (Version None)
Quarter: 2010Q3

REPORT INFORMATION
  Report Type: 
  Country: None (occurrence: None)
  Receive Date: 20100702
  Receipt Date: 20100623
  Transmission Date: 20110219
  Serious: Yes (Other)
  Sender: FDA-Public Use
  Company Number: FI-ROCHE-711285

PATIENT
  Age: 58 Year
  Sex: Female

DRUGS (6)
  1. TOCILIZUMAB [Interacting]
     Indication: RHEUMATOID ARTHRITIS
     Dosage: DRUG DISCONTINUED NOS.
     Route: 042
     Dates: start: 20081201
  2. RITUXIMAB [Suspect]
     Indication: RHEUMATOID ARTHRITIS
     Route: 042
  3. RITUXIMAB [Suspect]
     Dosage: FREQUENCY REPORTED AS :CYCLES OF TWO INFUSIONS GIVEN ON THE DAYS 1 AND 15.DRUG DISCONTINUED NOS.
     Route: 042
     Dates: start: 20080801
  4. METHOTREXATE [Interacting]
     Indication: PRODUCT USED FOR UNKNOWN INDICATION
     Dosage: DRUG REPORTED AS TREXAN (METHOTREXATE) WHICH WAS DISCONTINUED NOS.
     Route: 065
  5. PREDNISOLONE [Concomitant]
     Indication: RHEUMATOID ARTHRITIS
     Route: 048
  6. HYDROXYCHLOROQUINE SULFATE [Concomitant]
     Indication: RHEUMATOID ARTHRITIS
     Dosage: DRUG REPORTED AS OXIKLORIN (HYDROXYCHLOROQUINE).
     Route: 065

REACTIONS (5)
  - ALANINE AMINOTRANSFERASE INCREASED [None]
  - DIABETES MELLITUS [None]
  - DRUG INEFFECTIVE [None]
  - DRUG INTERACTION [None]
  - HYPERCHOLESTEROLAEMIA [None]
